FAERS Safety Report 26102426 (Version 1)
Quarter: 2025Q4

REPORT INFORMATION
  Report Type: Spontaneous
  Country: CN (occurrence: CN)
  Receive Date: 20251128
  Receipt Date: 20251128
  Transmission Date: 20260118
  Serious: Yes (Other)
  Sender: JOHNSON AND JOHNSON
  Company Number: CN-JNJFOC-20251158106

PATIENT
  Age: 15 Year
  Sex: Female

DRUGS (2)
  1. DARZALEX [Suspect]
     Active Substance: DARATUMUMAB
     Indication: Encephalitis
     Route: 065
  2. OFATUMUMAB [Suspect]
     Active Substance: OFATUMUMAB
     Indication: Encephalitis
     Route: 065

REACTIONS (6)
  - Pseudomonas infection [Unknown]
  - Pneumonia klebsiella [Unknown]
  - Pneumonia [Unknown]
  - Off label use [Unknown]
  - Haematological infection [Unknown]
  - Upper respiratory tract infection [Unknown]
